FAERS Safety Report 11811161 (Version 1)
Quarter: 2015Q4

REPORT INFORMATION
  Report Type: Spontaneous
  Country: GB (occurrence: GB)
  Receive Date: 20151208
  Receipt Date: 20151208
  Transmission Date: 20160305
  Serious: Yes (Other)
  Sender: FDA-Public Use
  Company Number: GB-SA-2015SA197038

PATIENT
  Age: 83 Year
  Sex: Female
  Weight: 58 kg

DRUGS (9)
  1. RANITIDINE [Concomitant]
     Active Substance: RANITIDINE\RANITIDINE HYDROCHLORIDE
  2. THYROXIN [Concomitant]
     Active Substance: LEVOTHYROXINE
  3. LOSARTAN. [Concomitant]
     Active Substance: LOSARTAN
  4. LATANOPROST. [Concomitant]
     Active Substance: LATANOPROST
  5. LACTULOSE. [Concomitant]
     Active Substance: LACTULOSE
  6. GLICLAZIDE [Concomitant]
     Active Substance: GLICLAZIDE
  7. CITALOPRAM HYDROBROMIDE. [Suspect]
     Active Substance: CITALOPRAM HYDROBROMIDE
     Indication: DEPRESSION
     Route: 048
     Dates: end: 20150909
  8. SIMVASTATIN. [Concomitant]
     Active Substance: SIMVASTATIN
  9. CLOPIDOGREL BISULFATE. [Suspect]
     Active Substance: CLOPIDOGREL BISULFATE
     Route: 048
     Dates: end: 20150909

REACTIONS (3)
  - Gastrointestinal haemorrhage [Unknown]
  - Haematemesis [Unknown]
  - Fall [Recovered/Resolved]

NARRATIVE: CASE EVENT DATE: 20150909
